FAERS Safety Report 8221051-5 (Version None)
Quarter: 2012Q1

REPORT INFORMATION
  Report Type: 
  Country: None (occurrence: None)
  Receive Date: 20120320
  Receipt Date: 20120307
  Transmission Date: 20120608
  Serious: Yes (Hospitalization)
  Sender: FDA-Public Use
  Company Number: FR-ELI_LILLY_AND_COMPANY-FR201203002141

PATIENT
  Age: 83 Year
  Sex: Female

DRUGS (8)
  1. ACETAMINOPHEN AND TRAMADOL HCL [Concomitant]
  2. ACETAMINOPHEN [Concomitant]
  3. OXAZEPAM [Concomitant]
  4. FORTEO [Suspect]
     Indication: OSTEOPOROSIS
     Dosage: 20 UG, QD
     Route: 065
     Dates: start: 20110930, end: 20120227
  5. PLAVIX [Concomitant]
  6. ATENOLOL [Concomitant]
  7. TANAKAN [Concomitant]
  8. CRESTOR [Concomitant]

REACTIONS (2)
  - DIABETES MELLITUS [None]
  - HEADACHE [None]
